FAERS Safety Report 24030568 (Version 2)
Quarter: 2024Q3

REPORT INFORMATION
  Report Type: Spontaneous
  Country: CN (occurrence: CN)
  Receive Date: 20240628
  Receipt Date: 20240703
  Transmission Date: 20241017
  Serious: Yes (Hospitalization, Other)
  Sender: NOVARTIS
  Company Number: CN-002147023-NVSC2024CN135060

PATIENT
  Age: 75 Year
  Sex: Female
  Weight: 58 kg

DRUGS (1)
  1. CARBAMAZEPINE [Suspect]
     Active Substance: CARBAMAZEPINE
     Indication: Symptomatic treatment
     Dosage: 0.2 G, TID
     Route: 048
     Dates: start: 20240606, end: 20240606

REACTIONS (16)
  - Dizziness [Recovered/Resolved]
  - Asthenia [Recovered/Resolved]
  - Demyelination [Unknown]
  - Arteriosclerosis coronary artery [Unknown]
  - Aortic arteriosclerosis [Unknown]
  - Fall [Unknown]
  - Epistaxis [Unknown]
  - Chest pain [Unknown]
  - Blood pressure abnormal [Unknown]
  - Sinusitis [Unknown]
  - Skin lesion inflammation [Unknown]
  - Middle lobe syndrome [Unknown]
  - Cardiac ventriculogram abnormal [Unknown]
  - Barrel chest [Unknown]
  - Spinal osteoarthritis [Unknown]
  - Musculoskeletal chest pain [Unknown]

NARRATIVE: CASE EVENT DATE: 20240606
